FAERS Safety Report 18665061 (Version 4)
Quarter: 2021Q3

REPORT INFORMATION
  Report Type: Report from Study
  Country: BR (occurrence: BR)
  Receive Date: 20201225
  Receipt Date: 20210728
  Transmission Date: 20211014
  Serious: Yes (Hospitalization, Other)
  Sender: FDA-Public Use
  Company Number: BR-TAKEDA-2020TUS059956

PATIENT
  Age: 63 Year
  Sex: Male

DRUGS (7)
  1. MESALAZINE [Suspect]
     Active Substance: MESALAMINE
     Dosage: 800 MILLIGRAM, TID
     Route: 065
  2. MESACOL [MESALAZINE] [Suspect]
     Active Substance: MESALAMINE
     Indication: COLITIS
     Dosage: UNK
     Route: 065
  3. VEDOLIZUMAB [Suspect]
     Active Substance: VEDOLIZUMAB
     Indication: CROHN^S DISEASE
     Dosage: 300 MILLIGRAM
     Route: 042
     Dates: start: 20190618, end: 202010
  4. VEDOLIZUMAB [Suspect]
     Active Substance: VEDOLIZUMAB
     Indication: COLITIS
     Dosage: 300 MILLIGRAM
     Route: 042
     Dates: start: 20190618
  5. MESALAZINE [Suspect]
     Active Substance: MESALAMINE
     Indication: CROHN^S DISEASE
     Dosage: 800 MILLIGRAM
     Route: 065
  6. OSTEOBAN [Concomitant]
     Dosage: UNK UNK, MONTHLY
  7. OSCAL [CALCIUM CARBONATE] [Concomitant]
     Dosage: 400 MILLIGRAM

REACTIONS (5)
  - Haemorrhage [Unknown]
  - Bone tuberculosis [Not Recovered/Not Resolved]
  - Crohn^s disease [Unknown]
  - Colitis [Recovering/Resolving]
  - Osteoporosis [Unknown]

NARRATIVE: CASE EVENT DATE: 202010
